FAERS Safety Report 6074798-3 (Version None)
Quarter: 2009Q1

REPORT INFORMATION
  Report Type: 
  Country: None (occurrence: None)
  Receive Date: 20090212
  Receipt Date: 20090206
  Transmission Date: 20090719
  Serious: Yes (Other)
  Sender: FDA-Public Use
  Company Number: US-BAYER-200839553NA

PATIENT
  Sex: Female

DRUGS (2)
  1. AVELOX [Suspect]
     Indication: BRONCHITIS
     Dates: start: 20080125, end: 20080201
  2. ROCEPHIN [Concomitant]

REACTIONS (2)
  - HEART RATE INCREASED [None]
  - TACHYCARDIA [None]
